FAERS Safety Report 7116836-2 (Version None)
Quarter: 2010Q4

REPORT INFORMATION
  Report Type: 
  Country: None (occurrence: None)
  Receive Date: 20101122
  Receipt Date: 20101118
  Transmission Date: 20110411
  Serious: Yes (Death)
  Sender: FDA-Public Use
  Company Number: AU-PFIZER INC-2007005891

PATIENT
  Age: 66 Year
  Sex: Male
  Weight: 87 kg

DRUGS (6)
  1. SUNITINIB MALATE [Suspect]
     Indication: RENAL CELL CARCINOMA
     Dosage: 37.5 MG, 1X/DAY 4 WEEKS ON 2 WEEKS OFF
     Route: 048
     Dates: start: 20060127, end: 20070119
  2. PREDNISOLONE [Concomitant]
     Indication: MYALGIA
     Route: 048
     Dates: start: 20050701
  3. SIMVASTATIN [Concomitant]
     Route: 048
     Dates: start: 20031001
  4. NATRILIX [Concomitant]
     Route: 048
     Dates: start: 20041001
  5. WARFARIN [Concomitant]
     Route: 048
     Dates: start: 19870422
  6. NEXIUM [Concomitant]
     Route: 048
     Dates: start: 20061207

REACTIONS (1)
  - DEATH [None]
